FAERS Safety Report 5049106-7 (Version None)
Quarter: 2006Q3

REPORT INFORMATION
  Report Type: 
  Country: None (occurrence: None)
  Receive Date: 20060706
  Receipt Date: 20060626
  Transmission Date: 20061208
  Serious: Yes (Life-Threatening, Hospitalization)
  Sender: FDA-Public Use
  Company Number: 2006079850

PATIENT
  Age: 33 Year
  Sex: Male

DRUGS (2)
  1. GENOTROPIN [Suspect]
     Indication: HYPOPITUITARISM
     Dosage: 0.4 MG (0.4 MG, 1 IN 1 D), SUBCUTANEOUS
     Route: 058
     Dates: start: 20030428, end: 20060428
  2. TESTOSTERONE [Concomitant]

REACTIONS (1)
  - HYDROCEPHALUS [None]
